FAERS Safety Report 5660310-7 (Version None)
Quarter: 2008Q1

REPORT INFORMATION
  Report Type: 
  Country: None (occurrence: None)
  Receive Date: 20080306
  Receipt Date: 20080221
  Transmission Date: 20080703
  Serious: Yes (Hospitalization)
  Sender: FDA-Public Use
  Company Number: L08-GER-00716-02

PATIENT
  Weight: 3.8 kg

DRUGS (2)
  1. PROSTAGLANDIN [Suspect]
     Indication: LABOUR INDUCTION
     Dosage: 3 MG ONCE TRANSPLACENTAL
     Route: 064
  2. OXYTOCIN [Concomitant]

REACTIONS (3)
  - CAESAREAN SECTION [None]
  - DRUG EXPOSURE DURING PREGNANCY [None]
  - NEONATAL ASPHYXIA [None]
